FAERS Safety Report 4830580-3 (Version None)
Quarter: 2005Q4

REPORT INFORMATION
  Report Type: 
  Country: None (occurrence: None)
  Receive Date: 20051115
  Receipt Date: 20051031
  Transmission Date: 20060501
  Serious: Yes (Life-Threatening, Other)
  Sender: FDA-Public Use
  Company Number: 2005-02262

PATIENT
  Age: 48 Year
  Sex: Female
  Weight: 37 kg

DRUGS (7)
  1. VELCADE [Suspect]
     Indication: MULTIPLE MYELOMA
     Dosage: 1.60 MG/BODY, INTRAVENOUS
     Route: 042
     Dates: start: 20050716, end: 20050723
  2. ALENDRONATE SODIUM [Concomitant]
  3. DIFLUCAN (FLUCONAZOLE) CAPSULE [Concomitant]
  4. ALLOPURINOL [Concomitant]
  5. BAKTAR (SULFAMETHOXAZOLE, TRIMETHOPRIM) TABLET [Concomitant]
  6. GASTER OD (FAMOTIDINE) TABLET [Concomitant]
  7. FENTANYL (FENTANYL) PATCH [Concomitant]

REACTIONS (1)
  - INTERSTITIAL LUNG DISEASE [None]
